FAERS Safety Report 23914569 (Version 1)
Quarter: 2024Q2

REPORT INFORMATION
  Report Type: Spontaneous
  Country: US (occurrence: None)
  Receive Date: 20240528
  Receipt Date: 20240528
  Transmission Date: 20240716
  Serious: Yes (Hospitalization)
  Sender: FDA-Public Use
  Company Number: None

PATIENT
  Age: 89 Year
  Sex: Male

DRUGS (1)
  1. LENALIDOMIDE [Suspect]
     Active Substance: LENALIDOMIDE
     Dosage: TAKE L CAPSULE BY MOUTH1 TIME A DAY FOR 21DAYSON THEN 7 DAYS OFF
     Route: 048
     Dates: start: 202405

REACTIONS (3)
  - Dehydration [None]
  - Confusional state [None]
  - Therapy interrupted [None]

NARRATIVE: CASE EVENT DATE: 20240523
